FAERS Safety Report 9350863 (Version 1)
Quarter: 2013Q2

REPORT INFORMATION
  Report Type: Spontaneous
  Country: TR (occurrence: TR)
  Receive Date: 20130617
  Receipt Date: 20130617
  Transmission Date: 20140414
  Serious: Yes (Death)
  Sender: FDA-Public Use
  Company Number: TR-ASTELLAS-2013EU005117

PATIENT
  Sex: 0

DRUGS (1)
  1. PROGRAF [Suspect]
     Indication: FOETAL EXPOSURE DURING PREGNANCY
     Dosage: 2 MG, BID
     Route: 064

REACTIONS (1)
  - Death [Fatal]
